FAERS Safety Report 5257012-8 (Version None)
Quarter: 2007Q1

REPORT INFORMATION
  Report Type: 
  Country: None (occurrence: None)
  Receive Date: 20070302
  Receipt Date: 20070215
  Transmission Date: 20070707
  Serious: Yes (Hospitalization)
  Sender: FDA-Public Use
  Company Number: ABX40-07-0162

PATIENT
  Age: 63 Year
  Sex: Female

DRUGS (11)
  1. ABRAXANE [Suspect]
     Indication: BREAST CANCER
     Dosage: LAST DOSE PRIOR TO SAE 07FEB07 (UNK) INTRAVENOUS
     Route: 042
     Dates: start: 20061102
  2. BEVACIZUMAB (BEVACIZUMAB) [Suspect]
     Indication: BREAST CANCER
     Dosage: LAST DOSE PRIOR TO SAE 07FEB07 (UNK) INTRAVENOUS
     Route: 042
     Dates: start: 20061102
  3. CYCLOPHOSPHAMIDE [Suspect]
     Indication: BREAST CANCER
     Dosage: LAST DOSE PRIOR TO SAE 07FEB07 (UNK) INTRAVENOUS
     Route: 042
     Dates: start: 20061102
  4. DOXORUBICIN HCL [Suspect]
     Indication: BREAST CANCER
     Dosage: LAST DOSE PRIOR TO SAE 07FEB07 (UNK) INTRAVENOUS
     Route: 042
     Dates: start: 20061102
  5. ACETAMINOPHEN [Concomitant]
  6. AMBIEN [Concomitant]
  7. LEVOTHYROXINE SODIUM [Concomitant]
  8. LOSARTAN POSTASSIUM [Concomitant]
  9. RALOXIFENE HCL [Concomitant]
  10. VENLAFAXINE HCL (VENLAFAXINE HYDROCHLORIDE) [Concomitant]
  11. ROSUVASTATIN CALCIUM (ROSUVASTATIN) [Concomitant]

REACTIONS (4)
  - BRAIN OEDEMA [None]
  - DRUG TOXICITY [None]
  - HEADACHE [None]
  - HYPERTENSION [None]
